FAERS Safety Report 24201555 (Version 1)
Quarter: 2024Q3

REPORT INFORMATION
  Report Type: Report from Study
  Country: GB (occurrence: GB)
  Receive Date: 20240812
  Receipt Date: 20240812
  Transmission Date: 20241017
  Serious: Yes (Hospitalization)
  Sender: MYLAN
  Company Number: GB-MYLANLABS-2024M1074140

PATIENT
  Age: 76 Year
  Sex: Male
  Weight: 95 kg

DRUGS (5)
  1. ATORVASTATIN [Suspect]
     Active Substance: ATORVASTATIN
     Indication: Product used for unknown indication
     Dosage: UNK
     Route: 065
  2. ZILTIVEKIMAB [Concomitant]
     Active Substance: ZILTIVEKIMAB
     Indication: Arteriosclerosis
     Dosage: UNK
     Route: 065
     Dates: start: 20221005
  3. ZILTIVEKIMAB [Concomitant]
     Active Substance: ZILTIVEKIMAB
     Dosage: UNK
     Route: 065
     Dates: start: 20221005, end: 20230804
  4. ZILTIVEKIMAB [Concomitant]
     Active Substance: ZILTIVEKIMAB
     Dosage: UNK
     Route: 065
     Dates: start: 20231004
  5. FUROSEMIDE [Concomitant]
     Active Substance: FUROSEMIDE
     Dosage: UNK
     Route: 065

REACTIONS (2)
  - Non-cardiac chest pain [Recovered/Resolved]
  - Therapy cessation [Unknown]

NARRATIVE: CASE EVENT DATE: 20240216
